FAERS Safety Report 19877023 (Version 2)
Quarter: 2021Q3

REPORT INFORMATION
  Report Type: Spontaneous
  Country: DE (occurrence: DE)
  Receive Date: 20210924
  Receipt Date: 20210926
  Transmission Date: 20211014
  Serious: Yes (Hospitalization)
  Sender: FDA-Public Use
  Company Number: DE-DEXPHARM-20211553

PATIENT
  Age: 55 Year
  Sex: Female
  Weight: 62 kg

DRUGS (13)
  1. TORASEMID [Suspect]
     Active Substance: TORSEMIDE
     Route: 048
  2. MOXONIDIN [Concomitant]
     Active Substance: MOXONIDINE
     Dosage: 0.4 MG, ONE TABLET  IN THE EVENING
     Route: 048
  3. COLECALCIFEROL (VITAMIN D) [Concomitant]
     Active Substance: CHOLECALCIFEROL
     Dosage: 20,000 IU, ACCORDING TO THE SCHEME, CAPSULES
     Route: 048
  4. BENAZEPRIL [Suspect]
     Active Substance: BENAZEPRIL HYDROCHLORIDE
     Dosage: 10 MG, ONE TABLET IN THE MORNING ONE IN THE EVENING
     Route: 048
  5. CARVEDILOL. [Concomitant]
     Active Substance: CARVEDILOL
     Dosage: 12.5 MG, ONE TABLET IN THE MORNING ONE IN THE EVENING
     Route: 048
  6. INSULIN LISPRO [Concomitant]
     Active Substance: INSULIN LISPRO
     Dosage: 1 IU, AS NEEDED, PRE?FILLED SYRINGES
     Route: 058
  7. PANTOPRAZOL [Concomitant]
     Active Substance: PANTOPRAZOLE SODIUM
     Dosage: 20 MG, ONE TABLET IN THE MORNING ONE IN THE EVENING, SUSTAINED?RELEASE TABLETS
     Route: 048
  8. VENLAFAXIN [Suspect]
     Active Substance: VENLAFAXINE HYDROCHLORIDE
     Dosage: 75 MG, ONE TABLET IN THE MORNING ONE IN THE EVENING
     Route: 048
  9. LERCANIDIPINE [Concomitant]
     Active Substance: LERCANIDIPINE
     Dosage: 20 MG,  HALF TABLET IN THE MORNING AND HALF TABLET IN THE EVENING
     Route: 048
  10. FLUVASTATIN [Concomitant]
     Active Substance: FLUVASTATIN SODIUM
     Dosage: 80 MG, ONE TABLET  IN THE EVENING, SUSTAINED?RELEASE TABLETS
     Route: 048
  11. ACETYLSALICYLSAURE [Concomitant]
     Active Substance: ASPIRIN
     Dosage: 100 MG,ONE TABLET IN THE MORNING
     Route: 048
  12. DICLOFENAC [Suspect]
     Active Substance: DICLOFENAC
     Dosage: 75 MG, AS NEEDED, SUSTAINED?RELEASE TABLETS
     Route: 048
  13. INSULIN GLARGIN [Concomitant]
     Active Substance: INSULIN GLARGINE
     Dosage: 1 IU, 12 IN THE EVENING, CYLINDRICAL AMPOULES
     Route: 058

REACTIONS (7)
  - Headache [Recovering/Resolving]
  - Nausea [Recovering/Resolving]
  - Jaundice [Recovering/Resolving]
  - Acute kidney injury [Recovering/Resolving]
  - Fatigue [Recovering/Resolving]
  - General physical health deterioration [Recovering/Resolving]
  - Decreased appetite [Recovering/Resolving]
